FAERS Safety Report 11502359 (Version 1)
Quarter: 2015Q3

REPORT INFORMATION
  Report Type: Spontaneous
  Country: US (occurrence: US)
  Receive Date: 20150914
  Receipt Date: 20150914
  Transmission Date: 20151125
  Serious: Yes (Other)
  Sender: FDA-Public Use
  Company Number: US-TAKEDA-TPA2012A09574

PATIENT

DRUGS (13)
  1. AMARYL [Concomitant]
     Active Substance: GLIMEPIRIDE
     Dosage: 4 MG, UNK
     Dates: start: 200809, end: 201011
  2. METFORMIN [Concomitant]
     Active Substance: METFORMIN HYDROCHLORIDE
     Dosage: 850 MG, UNK
     Dates: start: 200712, end: 201011
  3. JANUVIA [Concomitant]
     Active Substance: SITAGLIPTIN PHOSPHATE
     Dosage: 100 MG, UNK
     Dates: start: 200712, end: 200901
  4. ACTOS [Suspect]
     Active Substance: PIOGLITAZONE HYDROCHLORIDE
     Indication: TYPE 2 DIABETES MELLITUS
     Dosage: 45 MG, UNK
     Route: 048
     Dates: start: 200712, end: 200803
  5. ACTOPLUS MET [Suspect]
     Active Substance: METFORMIN HYDROCHLORIDE\PIOGLITAZONE HYDROCHLORIDE
     Indication: TYPE 2 DIABETES MELLITUS
     Dosage: 15 MG - 850 MG, UNK
     Route: 048
     Dates: start: 200702, end: 200705
  6. ACTOPLUS MET [Suspect]
     Active Substance: METFORMIN HYDROCHLORIDE\PIOGLITAZONE HYDROCHLORIDE
     Dosage: 15 MG - 850 MG, UNK
     Route: 048
     Dates: start: 200706, end: 200712
  7. ACTOS [Suspect]
     Active Substance: PIOGLITAZONE HYDROCHLORIDE
     Dosage: 45 MG, UNK
     Route: 048
     Dates: start: 200803, end: 200804
  8. LANTUS [Concomitant]
     Active Substance: INSULIN GLARGINE
     Dosage: 100 U/ML, UNK
     Dates: start: 200610, end: 201011
  9. BYETTA [Concomitant]
     Active Substance: EXENATIDE
     Dosage: 5 MCG, UNK
     Dates: start: 200906, end: 200909
  10. GLUCOTROL [Concomitant]
     Active Substance: GLIPIZIDE
     Dosage: 5 MG, UNK
     Dates: start: 200607, end: 200610
  11. ACTOS [Suspect]
     Active Substance: PIOGLITAZONE HYDROCHLORIDE
     Dosage: 45 MG, UNK
     Route: 048
     Dates: start: 20091112, end: 201007
  12. HUMALOG MIX [Concomitant]
     Active Substance: INSULIN LISPRO
     Dosage: 50/50, UNK
     Dates: start: 200910, end: 201007
  13. DIABETA                            /00145301/ [Concomitant]
     Dosage: 5 MG, UNK
     Dates: start: 200607, end: 200608

REACTIONS (1)
  - Bladder cancer [Unknown]

NARRATIVE: CASE EVENT DATE: 20080501
